FAERS Safety Report 7471814-9 (Version None)
Quarter: 2011Q2

REPORT INFORMATION
  Report Type: 
  Country: None (occurrence: None)
  Receive Date: 20110511
  Receipt Date: 20100510
  Transmission Date: 20111010
  Serious: No
  Sender: FDA-Public Use
  Company Number: A0860687A

PATIENT
  Age: 71 Year
  Sex: Female

DRUGS (4)
  1. SIMVASTATIN [Concomitant]
     Dosage: 20MG PER DAY
  2. XELODA [Concomitant]
     Dosage: 1000MGM2 TWICE PER DAY
  3. FLECAINIDE ACETATE [Concomitant]
  4. TYKERB [Suspect]
     Dosage: 1000MG PER DAY
     Route: 048

REACTIONS (1)
  - STOMATITIS [None]
